FAERS Safety Report 25018046 (Version 1)
Quarter: 2025Q1

REPORT INFORMATION
  Report Type: Spontaneous
  Country: US (occurrence: None)
  Receive Date: 20250227
  Receipt Date: 20250227
  Transmission Date: 20250409
  Serious: Yes (Other)
  Sender: FDA-CTU
  Company Number: None

PATIENT
  Age: 43 Year
  Sex: Female
  Weight: 108 kg

DRUGS (4)
  1. TRAZODONE [Suspect]
     Active Substance: TRAZODONE HYDROCHLORIDE
     Route: 048
  2. WEGOVY [Concomitant]
     Active Substance: SEMAGLUTIDE
  3. ESCITALOPRAM [Concomitant]
     Active Substance: ESCITALOPRAM OXALATE
  4. BUPROPION [Concomitant]
     Active Substance: BUPROPION

REACTIONS (3)
  - Drug dispensed to wrong patient [None]
  - Product administered by wrong person [None]
  - Adverse event [None]

NARRATIVE: CASE EVENT DATE: 20250225
